FAERS Safety Report 7043645-5 (Version None)
Quarter: 2010Q4

REPORT INFORMATION
  Report Type: 
  Country: None (occurrence: None)
  Receive Date: 20101008
  Receipt Date: 20100924
  Transmission Date: 20110411
  Serious: Yes (Hospitalization, Other)
  Sender: FDA-Public Use
  Company Number: GB-ACCORD-006124

PATIENT
  Age: 45 Year
  Sex: Female

DRUGS (5)
  1. ANASTROZOLE [Suspect]
     Indication: BREAST CANCER METASTATIC
     Dosage: ORAL
     Route: 048
  2. GOSRELIN(GOSRELIN) [Suspect]
     Indication: BREAST CANCER METASTATIC
  3. PAMIDRONIC ACID(PAMIDRONIC ACID) [Suspect]
     Indication: METASTATIC PAIN
     Dosage: 2.00-DOSAG / INTRAVENOUS (NTO OTHERWISE SPECIFIED)
     Route: 042
  4. EXEMESTANE [Suspect]
     Indication: BREAST CANCER METASTATIC
  5. ACETAZOLAMIDE(AZETAZOLAMIDE) [Suspect]
     Indication: BENIGN INTRACRANIAL HYPERTENSION
     Dosage: 250.00 MG

REACTIONS (9)
  - ANAEMIA [None]
  - BENIGN INTRACRANIAL HYPERTENSION [None]
  - BONE DENSITY DECREASED [None]
  - DRUG INTOLERANCE [None]
  - MALIGNANT NEOPLASM PROGRESSION [None]
  - METASTASES TO BONE [None]
  - METASTATIC PAIN [None]
  - SPINAL FRACTURE [None]
  - VISUAL ACUITY REDUCED [None]
